FAERS Safety Report 25425454 (Version 1)
Quarter: 2025Q2

REPORT INFORMATION
  Report Type: Spontaneous
  Country: GB (occurrence: GB)
  Receive Date: 20250611
  Receipt Date: 20250611
  Transmission Date: 20250716
  Serious: Yes (Other)
  Sender: ESPERION THERAPEUTICS
  Company Number: None

PATIENT
  Age: 75 Year
  Sex: Female
  Weight: 59 kg

DRUGS (2)
  1. BEMPEDOIC ACID [Suspect]
     Active Substance: BEMPEDOIC ACID
     Indication: Product used for unknown indication
     Dosage: 1 DOSAGE FORM (180 MG), QD (ONE TO BE TAKEN ONCE DAILY)
     Route: 065
  2. FAMOTIDINE [Concomitant]
     Active Substance: FAMOTIDINE
     Indication: Gastrooesophageal reflux disease
     Dosage: 1 DOSAGE FORM, BID (ONE TO BE TAKEN TWICE A DAY UP TO 48HRS BEFORE ENDOSCOPY)
     Route: 065
     Dates: start: 20250327

REACTIONS (1)
  - Arthralgia [Recovered/Resolved]
